FAERS Safety Report 17246356 (Version 1)
Quarter: 2020Q1

REPORT INFORMATION
  Report Type: Spontaneous
  Country: US (occurrence: US)
  Receive Date: 20200108
  Receipt Date: 20200108
  Transmission Date: 20200409
  Serious: Yes (Other)
  Sender: FDA-Public Use
  Company Number: US-PFIZER INC-2020006805

PATIENT
  Age: 76 Year
  Sex: Female

DRUGS (1)
  1. IBRANCE [Suspect]
     Active Substance: PALBOCICLIB
     Indication: BREAST CANCER FEMALE
     Dosage: 75 MG, UNK

REACTIONS (9)
  - Gastrooesophageal reflux disease [Unknown]
  - Electrocardiogram abnormal [Unknown]
  - Anaemia [Unknown]
  - Leukopenia [Unknown]
  - Neuropathy peripheral [Unknown]
  - Arthritis [Unknown]
  - Neoplasm progression [Unknown]
  - Osteopenia [Unknown]
  - Hypercholesterolaemia [Unknown]
